FAERS Safety Report 24271248 (Version 2)
Quarter: 2024Q4

REPORT INFORMATION
  Report Type: Spontaneous
  Country: US (occurrence: US)
  Receive Date: 20240901
  Receipt Date: 20241214
  Transmission Date: 20250114
  Serious: No
  Sender: LUPIN
  Company Number: US-LUPIN PHARMACEUTICALS INC.-2024-08032

PATIENT

DRUGS (1)
  1. ALBUTEROL SULFATE [Suspect]
     Active Substance: ALBUTEROL SULFATE
     Indication: Respiratory distress
     Dosage: UNK, Q4H (EVERY FOUR HOURS)

REACTIONS (5)
  - Wrong technique in product usage process [Unknown]
  - Device occlusion [Unknown]
  - Product use in unapproved indication [Unknown]
  - Product substitution issue [Unknown]
  - No adverse event [Unknown]
